FAERS Safety Report 6575759-8 (Version None)
Quarter: 2010Q1

REPORT INFORMATION
  Report Type: 
  Country: None (occurrence: None)
  Receive Date: 20100209
  Receipt Date: 20100205
  Transmission Date: 20100710
  Serious: Yes (Other)
  Sender: FDA-Public Use
  Company Number: AU-PFIZER INC-2010015143

PATIENT
  Age: 59 Year
  Sex: Male

DRUGS (9)
  1. CHAMPIX [Suspect]
  2. XANAX [Concomitant]
  3. STELAZINE [Concomitant]
  4. ROCALTROL [Concomitant]
  5. ATACAND [Concomitant]
  6. ATACAND HCT [Concomitant]
  7. ISCOVER [Concomitant]
     Dosage: 75 MG, UNK
  8. LOSEC [Concomitant]
     Dosage: 20 MG, UNK
  9. MINIPRESS [Concomitant]

REACTIONS (5)
  - ANXIETY [None]
  - FEELING ABNORMAL [None]
  - NAUSEA [None]
  - PANIC ATTACK [None]
  - PERSONALITY DISORDER [None]
